FAERS Safety Report 8402633-4 (Version None)
Quarter: 2012Q2

REPORT INFORMATION
  Report Type: 
  Country: None (occurrence: None)
  Receive Date: 20120601
  Receipt Date: 20120522
  Transmission Date: 20120825
  Serious: Yes (Hospitalization, Other)
  Sender: FDA-Public Use
  Company Number: PHHY2012NZ045817

PATIENT
  Age: 22 Year
  Sex: Male

DRUGS (1)
  1. VALPROIC ACID [Suspect]

REACTIONS (16)
  - COMA SCALE ABNORMAL [None]
  - BLOOD PH DECREASED [None]
  - HYPOTENSION [None]
  - BASE EXCESS DECREASED [None]
  - HYPOTHERMIA [None]
  - APNOEA [None]
  - HAEMOGLOBIN INCREASED [None]
  - HYPOGLYCAEMIA [None]
  - UNRESPONSIVE TO STIMULI [None]
  - PCO2 INCREASED [None]
  - BLOOD CREATINE PHOSPHOKINASE INCREASED [None]
  - OVERDOSE [None]
  - ATRIAL FIBRILLATION [None]
  - ELECTROCARDIOGRAM ABNORMAL [None]
  - PO2 INCREASED [None]
  - BRADYCARDIA [None]
